FAERS Safety Report 18894357 (Version 7)
Quarter: 2024Q2

REPORT INFORMATION
  Report Type: Spontaneous
  Country: IN (occurrence: IN)
  Receive Date: 20210215
  Receipt Date: 20240522
  Transmission Date: 20240716
  Serious: Yes (Death, Other)
  Sender: FDA-Public Use
  Company Number: IN-PFIZER INC-2020001988

PATIENT
  Age: 67 Year
  Sex: Female
  Weight: 49.2 kg

DRUGS (11)
  1. PALBOCICLIB [Suspect]
     Active Substance: PALBOCICLIB
     Indication: Breast cancer metastatic
     Dosage: 125 MG, 1X/DAY
     Route: 048
     Dates: start: 20190226
  2. PALBOCICLIB [Suspect]
     Active Substance: PALBOCICLIB
     Dosage: 125 MG, CYCLIC, 3 WEEKS ON AND 10 DAYS OFF
  3. PALBOCICLIB [Suspect]
     Active Substance: PALBOCICLIB
     Dosage: 125 MG, CYCLIC, 3 WEEKS ON AND 2 WEEKS OFF
  4. PALBOCICLIB [Suspect]
     Active Substance: PALBOCICLIB
     Dosage: 125 MG, CYCLIC, 3 WEEKS ON AND 1 WEEK OFF
  5. PALBOCICLIB [Suspect]
     Active Substance: PALBOCICLIB
     Dosage: 125 MG, CYCLIC (125MG 1-0-0 X 3 WEEKS ON 1 WEEK OFF)
     Route: 048
     Dates: start: 20210601
  6. PALBOCICLIB [Suspect]
     Active Substance: PALBOCICLIB
     Dosage: 75 MG, CYCLIC, 3 WEEKS ON AND 1 WEEKS OFF
     Route: 048
  7. PALBOCICLIB [Suspect]
     Active Substance: PALBOCICLIB
     Indication: Breast cancer metastatic
     Dosage: 75MG 1-0-0 X 3 WEEKS ON 1 WEEK OFF
  8. FULVESTRANT [Concomitant]
     Active Substance: FULVESTRANT
     Dosage: 500 MG, MONTHLY
     Route: 030
  9. CALCIUM CARBONATE\CHOLECALCIFEROL [Concomitant]
     Active Substance: CALCIUM CARBONATE\CHOLECALCIFEROL
     Dosage: 500 MG, 1X/DAY
  10. ZOLEDRONIC ACID [Concomitant]
     Active Substance: ZOLEDRONIC ACID
     Dosage: 4 MG IN 100 ML NS, IV 20 MINS, MONTHLY ONCE
     Route: 042
  11. FASLODEX [Concomitant]
     Active Substance: FULVESTRANT
     Dosage: 500 MG, MONTHLY
     Route: 030

REACTIONS (10)
  - Diabetes mellitus [Unknown]
  - White blood cell count decreased [Fatal]
  - Platelet count decreased [Fatal]
  - Back pain [Unknown]
  - Haemoglobin decreased [Unknown]
  - Eosinophil percentage decreased [Unknown]
  - Red blood cell sedimentation rate increased [Unknown]
  - Neoplasm progression [Unknown]
  - Magnetic resonance imaging head abnormal [Unknown]
  - Blood creatinine decreased [Unknown]

NARRATIVE: CASE EVENT DATE: 20220524
